FAERS Safety Report 7657743-6 (Version None)
Quarter: 2011Q3

REPORT INFORMATION
  Report Type: 
  Country: None (occurrence: None)
  Receive Date: 20110804
  Receipt Date: 20110706
  Transmission Date: 20111222
  Serious: No
  Sender: FDA-Public Use
  Company Number: US-BAYER-2011-062169

PATIENT
  Age: 13 Year
  Sex: Male

DRUGS (1)
  1. DESONATE [Suspect]
     Indication: VITILIGO

REACTIONS (1)
  - DRUG INEFFECTIVE [None]
